FAERS Safety Report 9482869 (Version 1)
Quarter: 2013Q3

REPORT INFORMATION
  Report Type: Spontaneous
  Country: US (occurrence: US)
  Receive Date: 20130828
  Receipt Date: 20130828
  Transmission Date: 20140515
  Serious: Yes (Death, Hospitalization)
  Sender: FDA-Public Use
  Company Number: US-AMGEN-KDL238199

PATIENT
  Age: 89 Year
  Sex: Male
  Weight: 79.6 kg

DRUGS (15)
  1. PROCRIT [Suspect]
     Indication: RENAL FAILURE CHRONIC
     Dosage: 40000 IU, QWK
     Route: 065
     Dates: start: 20030516, end: 20070501
  2. LEVOTHRYROXINE SODIUM [Concomitant]
     Dosage: 100 ?G, QD
     Route: 065
  3. GLIMEPIRIDE [Concomitant]
     Dosage: 2 MG, QD
     Route: 065
  4. FUROSEMIDE [Concomitant]
     Dosage: 40 MG, BID
     Route: 065
  5. POTASSIUM CHLORIDE [Concomitant]
     Dosage: 20 MEQ, BID
     Route: 065
  6. ACETYLSALICYLIC ACID [Concomitant]
     Dosage: UNK UNK, QD
     Route: 065
  7. TAMSULOSIN HCL [Concomitant]
     Dosage: 40 MG, QD
  8. IRON [Concomitant]
     Dosage: UNK UNK, BID
  9. PREDNISONE [Concomitant]
     Dosage: 5 MG, BID
  10. XOPENEX [Concomitant]
     Dosage: UNK UNK, UNK
     Route: 055
  11. FLUTICASONE/SALMETEROL [Concomitant]
     Dosage: UNK UNK, UNK
     Route: 055
  12. PANTOPRAZOLE SODIUM [Concomitant]
  13. ENOXAPARIN [Concomitant]
  14. ONDANSETRON HYDROCHLORIDE [Concomitant]
  15. CARVEDILOL [Concomitant]

REACTIONS (1)
  - Circulatory collapse [Fatal]
